FAERS Safety Report 14532122 (Version 2)
Quarter: 2018Q1

REPORT INFORMATION
  Report Type: Spontaneous
  Country: US (occurrence: US)
  Receive Date: 20180214
  Receipt Date: 20180320
  Transmission Date: 20180509
  Serious: Yes (Death)
  Sender: FDA-Public Use
  Company Number: US-VERTEX PHARMACEUTICALS-2018-001143

PATIENT
  Age: 40 Year
  Sex: Female

DRUGS (4)
  1. CAYSTON [Concomitant]
     Active Substance: AZTREONAM
  2. MEPHYTON [Concomitant]
     Active Substance: PHYTONADIONE
  3. ORKAMBI [Suspect]
     Active Substance: IVACAFTOR\LUMACAFTOR
     Indication: CYSTIC FIBROSIS
     Dosage: 2 TABLETS (200/125MG EACH), BID
     Route: 048
     Dates: start: 20150811, end: 20180206
  4. PULMOZYME [Suspect]
     Active Substance: DORNASE ALFA
     Indication: CYSTIC FIBROSIS
     Dosage: 1 AMPOULE, QD
     Route: 055
     Dates: start: 20170202, end: 20180206

REACTIONS (1)
  - Death [Fatal]

NARRATIVE: CASE EVENT DATE: 20180206
